FAERS Safety Report 7475023-9 (Version None)
Quarter: 2011Q2

REPORT INFORMATION
  Report Type: 
  Country: None (occurrence: None)
  Receive Date: 20110505
  Receipt Date: 20110421
  Transmission Date: 20111010
  Serious: Yes (Other)
  Sender: FDA-Public Use
  Company Number: DSM-2011-00434

PATIENT
  Age: 77 Year
  Sex: Male
  Weight: 68 kg

DRUGS (2)
  1. OLMESARTAN MEDOXOMIL AND HYDROCHLOROTHIZIDE [Suspect]
     Indication: HYPERTENSION
     Dosage: 40/12.5 MG, ORAL, 40/25 MG,ORAL
     Route: 048
     Dates: start: 20110314, end: 20110408
  2. OLMESARTAN MEDOXOMIL AND HYDROCHLOROTHIZIDE [Suspect]
     Indication: HYPERTENSION
     Dosage: 40/12.5 MG, ORAL, 40/25 MG,ORAL
     Route: 048
     Dates: end: 20110314

REACTIONS (2)
  - HEPATITIS [None]
  - DIARRHOEA [None]
